FAERS Safety Report 11054979 (Version 1)
Quarter: 2015Q2

REPORT INFORMATION
  Report Type: Spontaneous
  Country: US (occurrence: None)
  Receive Date: 20150421
  Receipt Date: 20150421
  Transmission Date: 20150821
  Serious: Yes (Other)
  Sender: FDA-Public Use
  Company Number: None

PATIENT
  Age: 16 Year
  Sex: Female
  Weight: 48.99 kg

DRUGS (1)
  1. GUANFACINE 3 MG [Suspect]
     Active Substance: GUANFACINE
     Indication: ATTENTION DEFICIT/HYPERACTIVITY DISORDER
     Route: 048
     Dates: start: 201502, end: 201504

REACTIONS (6)
  - Insomnia [None]
  - Tic [None]
  - Emotional disorder [None]
  - Educational problem [None]
  - Treatment failure [None]
  - Decreased appetite [None]

NARRATIVE: CASE EVENT DATE: 201502
